FAERS Safety Report 21381174 (Version 1)
Quarter: 2022Q3

REPORT INFORMATION
  Report Type: Spontaneous
  Country: CN (occurrence: CN)
  Receive Date: 20220927
  Receipt Date: 20220927
  Transmission Date: 20221027
  Serious: Yes (Other)
  Sender: FDA-Public Use
  Company Number: CN-OTSUKA-2022_046100

PATIENT
  Age: 84 Year
  Sex: Female
  Weight: 45 kg

DRUGS (1)
  1. SAMSCA [Suspect]
     Active Substance: TOLVAPTAN
     Indication: Cardiac failure
     Dosage: 7.5 MG, QD
     Route: 048
     Dates: start: 20220829, end: 20220906

REACTIONS (3)
  - Thrombocytopenia [Recovering/Resolving]
  - Product use in unapproved indication [Unknown]
  - Underdose [Unknown]

NARRATIVE: CASE EVENT DATE: 20220829
